FAERS Safety Report 9402789 (Version 1)
Quarter: 2013Q3

REPORT INFORMATION
  Report Type: Spontaneous
  Country: CA (occurrence: CA)
  Receive Date: 20130716
  Receipt Date: 20130716
  Transmission Date: 20140515
  Serious: Yes (Death)
  Sender: FDA-Public Use
  Company Number: CA-GE HEALTHCARE MEDICAL DIAGNOSTICS-VISP-PR-1307L-0720

PATIENT
  Sex: Male

DRUGS (6)
  1. VISIPAQUE [Suspect]
     Indication: AORTIC STENT INSERTION
     Route: 065
  2. VISIPAQUE [Suspect]
     Indication: DIAGNOSTIC PROCEDURE
  3. N-ACETYLCYSTEINE [Concomitant]
     Route: 042
  4. SODIUM BICARBONATE [Concomitant]
     Route: 042
  5. LACTATED RINGERS SOLUTION [Concomitant]
     Route: 042
  6. 6% HYDROXYETHYL STARCH [Concomitant]
     Route: 042

REACTIONS (2)
  - Nephropathy toxic [Fatal]
  - Renal failure acute [Fatal]
